FAERS Safety Report 8617432 (Version 2)
Quarter: 2012Q4

REPORT INFORMATION
  Report Type: 
  Country: FR (occurrence: FR)
  Receive Date: 20120615
  Receipt Date: 20121130
  Transmission Date: 20130627
  Serious: Yes (Hospitalization, Other)
  Sender: FDA-Public Use
  Company Number: FR-NAPPMUNDI-GBR-2012-0010813

PATIENT
  Age: 71 Year
  Sex: Male

DRUGS (11)
  1. OXYNORM [Suspect]
     Indication: PRODUCT USED FOR UNKNOWN INDICATION
     Dosage: 5 mg, bid
     Route: 048
     Dates: start: 20120307, end: 20120330
  2. SOLUPRED                           /00016201/ [Suspect]
     Indication: PRODUCT USED FOR UNKNOWN INDICATION
     Dosage: 50 mg, bid
     Route: 065
     Dates: start: 20120321, end: 20120323
  3. CISPLATIN [Suspect]
     Indication: LUNG SQUAMOUS CELL CARCINOMA METASTATIC
     Dosage: 143 mg, daily
     Route: 042
     Dates: start: 20120322, end: 20120322
  4. TAXOTERE [Suspect]
     Indication: LUNG SQUAMOUS CELL CARCINOMA METASTATIC
     Dosage: 144 mg, daily
     Route: 042
     Dates: start: 20120322, end: 20120322
  5. DOMPERIDONE [Suspect]
     Dosage: 10 mg, bid
     Route: 048
     Dates: start: 201202, end: 20120330
  6. ISOPTINE [Suspect]
     Indication: PRODUCT USED FOR UNKNOWN INDICATION
     Dosage: 120 mg, daily
     Route: 065
     Dates: start: 20120109, end: 20120322
  7. EMEND                              /01627301/ [Suspect]
     Indication: PRODUCT USED FOR UNKNOWN INDICATION
     Dosage: 125 mg, daily
     Route: 048
     Dates: start: 20120322, end: 20120325
  8. ZOPHREN [Suspect]
     Indication: PRODUCT USED FOR UNKNOWN INDICATION
     Dosage: 8 mg, bid
     Route: 048
     Dates: start: 20120322, end: 20120325
  9. GRANOCYTE 34 [Suspect]
     Dosage: UNK
     Route: 058
     Dates: start: 20120322, end: 20120325
  10. CORDARONE [Concomitant]
     Dosage: 200 mg, daily
     Route: 048
  11. DIFFU K [Concomitant]

REACTIONS (2)
  - Pancreatitis acute [Recovered/Resolved]
  - Drug intolerance [Unknown]
